FAERS Safety Report 10503581 (Version 1)
Quarter: 2014Q4

REPORT INFORMATION
  Report Type: Spontaneous
  Country: GB (occurrence: None)
  Receive Date: 20141003
  Receipt Date: 20141003
  Transmission Date: 20150528
  Serious: Yes (Other)
  Sender: FDA-Public Use
  Company Number: GB-017204

PATIENT
  Sex: Female

DRUGS (1)
  1. PROPESS [Suspect]
     Active Substance: DINOPROSTONE
     Indication: PRODUCT USED FOR UNKNOWN INDICATION
     Route: 067

REACTIONS (3)
  - Postpartum haemorrhage [None]
  - Device expulsion [None]
  - Drug administration error [None]
